FAERS Safety Report 6870033-4 (Version None)
Quarter: 2010Q3

REPORT INFORMATION
  Report Type: 
  Country: None (occurrence: None)
  Receive Date: 20100712
  Receipt Date: 20100707
  Transmission Date: 20110219
  Serious: No
  Sender: FDA-Public Use
  Company Number: AU-144983

PATIENT
  Sex: Female

DRUGS (1)
  1. WINRHO [Suspect]
     Indication: FOETAL-MATERNAL HAEMORRHAGE
     Dosage: (2880 ?G INTRAVENOUS)
     Route: 042
     Dates: start: 20100601, end: 20100601

REACTIONS (11)
  - ABDOMINAL PAIN [None]
  - BACK PAIN [None]
  - BODY TEMPERATURE INCREASED [None]
  - CHEST DISCOMFORT [None]
  - CHROMATURIA [None]
  - DRUG EXPOSURE DURING PREGNANCY [None]
  - DYSPNOEA [None]
  - HAEMOLYTIC TRANSFUSION REACTION [None]
  - HYPERTENSION [None]
  - INFUSION RELATED REACTION [None]
  - PAIN IN EXTREMITY [None]
